FAERS Safety Report 7802589-9 (Version None)
Quarter: 2011Q4

REPORT INFORMATION
  Report Type: 
  Country: None (occurrence: None)
  Receive Date: 20111005
  Receipt Date: 20110923
  Transmission Date: 20120403
  Serious: Yes (Other)
  Sender: FDA-Public Use
  Company Number: 2011SP042968

PATIENT
  Age: 55 Year
  Sex: Male

DRUGS (2)
  1. DESLORATADINE [Suspect]
     Indication: RHINITIS ALLERGIC
     Dosage: 5 MG;QD;
     Dates: start: 20110824, end: 20110830
  2. CEPHALEXIN [Concomitant]

REACTIONS (1)
  - MUSCLE SPASMS [None]
